FAERS Safety Report 6165704-1 (Version None)
Quarter: 2009Q2

REPORT INFORMATION
  Report Type: 
  Country: None (occurrence: None)
  Receive Date: 20090423
  Receipt Date: 20090410
  Transmission Date: 20091009
  Serious: Yes (Death)
  Sender: FDA-Public Use
  Company Number: US-PFIZER INC-2009194494

PATIENT
  Age: 52 Year
  Sex: Male
  Weight: 137 kg

DRUGS (8)
  1. LISINOPRIL AND HYDROCHLOROTHIAZIDE [Suspect]
     Indication: HYPERTENSION
     Dosage: 20 MG, 1 TABLET DAILY
     Route: 048
     Dates: start: 20080404, end: 20090201
  2. LISINOPRIL AND HYDROCHLOROTHIAZIDE [Suspect]
     Dosage: 12.5 MG, 1 TABLET DAILY
     Route: 048
     Dates: start: 20080404, end: 20090201
  3. OXYMORPHONE HYDROCHLORIDE [Suspect]
     Indication: RHEUMATOID ARTHRITIS
     Dosage: 30 MG, 2X/DAY
     Route: 048
     Dates: start: 20090201, end: 20090201
  4. FLUOXETINE [Suspect]
     Indication: DEPRESSION
     Dosage: 40 MG, DAILY
     Route: 065
     Dates: start: 20071008, end: 20090201
  5. NABUMETONE [Suspect]
     Indication: ARTHRITIS
     Dosage: 750 MG, 2X/DAY
     Route: 048
     Dates: start: 20070619, end: 20090201
  6. LORATADINE [Suspect]
     Indication: RHINITIS ALLERGIC
     Dosage: 10 MG, DAILY
     Route: 048
     Dates: start: 20081031, end: 20090201
  7. TESTOSTERONE [Suspect]
     Indication: HYPOGONADISM
     Dosage: 5 MG, DAILY
     Route: 061
     Dates: start: 20081031, end: 20090201
  8. FOLIC ACID [Suspect]
     Dosage: 1 MG, DAILY
     Route: 048
     Dates: start: 20070417, end: 20090201

REACTIONS (1)
  - DEATH [None]
